FAERS Safety Report 24692401 (Version 1)
Quarter: 2024Q4

REPORT INFORMATION
  Report Type: Report from Study
  Country: IT (occurrence: IT)
  Receive Date: 20241203
  Receipt Date: 20241203
  Transmission Date: 20250114
  Serious: Yes (Other)
  Sender: MYLAN
  Company Number: None

PATIENT
  Age: 22 Year
  Sex: Female

DRUGS (4)
  1. ACETAMINOPHEN [Suspect]
     Active Substance: ACETAMINOPHEN
     Indication: Product used for unknown indication
     Dosage: 20 GRAM, TOTAL (40 TABLETS OF 500 MG)
     Route: 048
     Dates: start: 20240928, end: 20240928
  2. DELORAZEPAM [Concomitant]
     Active Substance: DELORAZEPAM
     Dosage: 25 DROPS PER DAY, CHRONIC THERAPY
     Route: 048
  3. FLUOXETINE HYDROCHLORIDE [Concomitant]
     Active Substance: FLUOXETINE HYDROCHLORIDE
     Dosage: 200 MILLIGRAM, QD
     Route: 048
  4. CHLORPROMAZINE [Concomitant]
     Active Substance: CHLORPROMAZINE
     Dosage: 200 MILLIGRAM, QD
     Route: 065

REACTIONS (5)
  - Poisoning [Unknown]
  - Dysarthria [Unknown]
  - Drug abuse [Unknown]
  - Intentional product misuse [Unknown]
  - Overdose [Unknown]

NARRATIVE: CASE EVENT DATE: 20240928
